FAERS Safety Report 24090338 (Version 1)
Quarter: 2024Q3

REPORT INFORMATION
  Report Type: Report from Study
  Country: US (occurrence: US)
  Receive Date: 20240715
  Receipt Date: 20240715
  Transmission Date: 20241017
  Serious: No
  Sender: TG THERAPEUTICS
  Company Number: US-TG THERAPEUTICS INC.-TGT003484

PATIENT
  Sex: Female
  Weight: 64.399 kg

DRUGS (2)
  1. UBLITUXIMAB [Suspect]
     Active Substance: UBLITUXIMAB
     Indication: Multiple sclerosis
     Dosage: 150 MILLIGRAM
     Route: 042
     Dates: start: 20230830, end: 20230830
  2. UBLITUXIMAB [Suspect]
     Active Substance: UBLITUXIMAB
     Dosage: 450 MILLIGRAM
     Route: 042
     Dates: start: 20230915, end: 20230915

REACTIONS (6)
  - Malaise [Unknown]
  - Pain [Unknown]
  - Vision blurred [Unknown]
  - Eye injury [Unknown]
  - Fatigue [Unknown]
  - Pain in extremity [Unknown]
